FAERS Safety Report 15127337 (Version 1)
Quarter: 2018Q3

REPORT INFORMATION
  Report Type: Report from Study
  Country: ES (occurrence: ES)
  Receive Date: 20180710
  Receipt Date: 20180710
  Transmission Date: 20181010
  Serious: Yes (Other)
  Sender: FDA-Public Use
  Company Number: ES-MYLANLABS-2018M1048361

PATIENT
  Age: 42 Year
  Sex: Female
  Weight: 68.7 kg

DRUGS (10)
  1. QUETIAPINE. [Interacting]
     Active Substance: QUETIAPINE
     Indication: BIPOLAR DISORDER
     Dosage: 50 MG, QD, 0?0?1
     Route: 048
     Dates: start: 20160626, end: 20160627
  2. QUETIAPINE. [Interacting]
     Active Substance: QUETIAPINE
     Dosage: 50 MG, QD, 0?0?1
     Route: 048
     Dates: start: 20160910, end: 20160913
  3. RISPERDAL FLAS [Interacting]
     Active Substance: RISPERIDONE
     Dosage: 3 MG, QD, 0?0?1
     Route: 048
     Dates: start: 20160901
  4. VENLAFAXINE [Suspect]
     Active Substance: VENLAFAXINE HYDROCHLORIDE
     Indication: PSYCHOTIC DISORDER
     Dosage: 150 MG, QD
     Route: 048
     Dates: start: 20160627
  5. QUETIAPINE. [Interacting]
     Active Substance: QUETIAPINE
     Indication: PSYCHOTIC DISORDER
     Dosage: 100 MG, QD, 1?0?1
     Route: 048
     Dates: start: 20160627, end: 20160910
  6. RISPERDAL FLAS [Interacting]
     Active Substance: RISPERIDONE
     Indication: BIPOLAR DISORDER
     Dosage: 6 MG, QD, 1/2?1/2?1
     Route: 048
     Dates: start: 20160626, end: 20160627
  7. VENLAFAXINE [Suspect]
     Active Substance: VENLAFAXINE HYDROCHLORIDE
     Indication: BIPOLAR DISORDER
  8. RISPERDAL FLAS [Interacting]
     Active Substance: RISPERIDONE
     Indication: PSYCHOTIC DISORDER
     Dosage: 4.5 MG, QD,1/2?0?1
     Route: 048
     Dates: start: 20160627, end: 20160901
  9. QUETIAPINE. [Interacting]
     Active Substance: QUETIAPINE
     Dosage: 25 MG, QD, 0?0?1
     Route: 048
     Dates: start: 20160913
  10. EUTIROX [Concomitant]
     Active Substance: LEVOTHYROXINE SODIUM
     Indication: PRODUCT USED FOR UNKNOWN INDICATION
     Dosage: UNK
     Route: 048

REACTIONS (2)
  - Abnormal weight gain [Not Recovered/Not Resolved]
  - Drug interaction [Unknown]

NARRATIVE: CASE EVENT DATE: 201606
